FAERS Safety Report 6441404-5 (Version None)
Quarter: 2009Q4

REPORT INFORMATION
  Report Type: 
  Country: None (occurrence: None)
  Receive Date: 20091116
  Receipt Date: 20091104
  Transmission Date: 20100525
  Serious: Yes (Other)
  Sender: FDA-Public Use
  Company Number: EG-PFIZER INC-2009295173

PATIENT
  Age: 35 Year
  Sex: Female

DRUGS (2)
  1. CYTOTEC [Suspect]
     Indication: ABORTION INDUCED
     Dosage: 200 UG, UNK
     Dates: start: 20091031, end: 20091105
  2. CYTOTEC [Suspect]
     Dosage: 200 UG, UNK
     Dates: start: 20091031

REACTIONS (2)
  - ABORTION [None]
  - OFF LABEL USE [None]
